FAERS Safety Report 13828403 (Version 2)
Quarter: 2017Q3

REPORT INFORMATION
  Report Type: Spontaneous
  Country: US (occurrence: US)
  Receive Date: 20170803
  Receipt Date: 20170809
  Transmission Date: 20171127
  Serious: No
  Sender: FDA-Public Use
  Company Number: US-PFIZER INC-2017332992

PATIENT
  Age: 79 Year
  Sex: Female

DRUGS (8)
  1. DEMEROL [Suspect]
     Active Substance: MEPERIDINE HYDROCHLORIDE
  2. GENTAMICIN SULFATE. [Suspect]
     Active Substance: GENTAMICIN SULFATE
  3. AUGMENTIN [Suspect]
     Active Substance: AMOXICILLIN\CLAVULANATE POTASSIUM
  4. ZANTAC [Suspect]
     Active Substance: RANITIDINE HYDROCHLORIDE
  5. BOTULISM ANTITOXIN NOS [Suspect]
     Active Substance: BOTULISM ANTITOXIN
  6. STALEVO [Suspect]
     Active Substance: CARBIDOPA\ENTACAPONE\LEVODOPA
  7. IODINE. [Suspect]
     Active Substance: IODINE
  8. PREVACID [Suspect]
     Active Substance: LANSOPRAZOLE

REACTIONS (1)
  - Drug hypersensitivity [Unknown]
